FAERS Safety Report 5924552-5 (Version None)
Quarter: 2008Q4

REPORT INFORMATION
  Report Type: 
  Country: None (occurrence: None)
  Receive Date: 20081020
  Receipt Date: 20081010
  Transmission Date: 20090506
  Serious: Yes (Hospitalization, Other)
  Sender: FDA-Public Use
  Company Number: US-PFIZER INC-2008085172

PATIENT
  Sex: Male
  Weight: 94.545 kg

DRUGS (7)
  1. TIKOSYN [Suspect]
  2. COREG [Concomitant]
  3. LIPITOR [Concomitant]
  4. PAXIL [Concomitant]
  5. RESTORIL [Concomitant]
  6. ZESTRIL [Concomitant]
  7. LASIX [Concomitant]

REACTIONS (3)
  - ABDOMINAL PAIN [None]
  - GASTROINTESTINAL TUBE INSERTION [None]
  - VIRAL INFECTION [None]
